FAERS Safety Report 16266076 (Version 6)
Quarter: 2021Q3

REPORT INFORMATION
  Report Type: Spontaneous
  Country: US (occurrence: US)
  Receive Date: 20190502
  Receipt Date: 20210903
  Transmission Date: 20211014
  Serious: No
  Sender: FDA-Public Use
  Company Number: US-PFIZER INC-2018281860

PATIENT
  Age: 43 Year
  Sex: Male
  Weight: 90 kg

DRUGS (7)
  1. TIZANIDINE. [Concomitant]
     Active Substance: TIZANIDINE
     Dosage: UNK
     Dates: start: 200704
  2. LYRICA [Suspect]
     Active Substance: PREGABALIN
     Indication: NEURALGIA
     Dosage: 300 MG, 2X/DAY
     Route: 048
     Dates: start: 2002, end: 2002
  3. HYDROCODONE BITARTRATE AND ACETAMINOPHEN [Concomitant]
     Active Substance: ACETAMINOPHEN\HYDROCODONE BITARTRATE
     Indication: TESTICULAR PAIN
     Dosage: UNK
     Dates: start: 20020302
  4. LYRICA [Suspect]
     Active Substance: PREGABALIN
     Indication: NECK PAIN
  5. LYRICA [Suspect]
     Active Substance: PREGABALIN
     Indication: PAIN IN EXTREMITY
  6. TRAZODONE [Concomitant]
     Active Substance: TRAZODONE HYDROCHLORIDE
     Dosage: UNK
     Dates: start: 200504
  7. LYRICA [Suspect]
     Active Substance: PREGABALIN
     Indication: TESTICULAR PAIN
     Dosage: 300 MG, 2X/DAY
     Route: 048

REACTIONS (5)
  - Insomnia [Unknown]
  - Memory impairment [Unknown]
  - Joint range of motion decreased [Unknown]
  - Moaning [Unknown]
  - Mobility decreased [Unknown]

NARRATIVE: CASE EVENT DATE: 20020218
